FAERS Safety Report 10257940 (Version 1)
Quarter: 2014Q2

REPORT INFORMATION
  Report Type: Spontaneous
  Country: US (occurrence: US)
  Receive Date: 20140625
  Receipt Date: 20140625
  Transmission Date: 20141212
  Serious: Yes (Hospitalization, Other)
  Sender: FDA-Public Use
  Company Number: US-ASTRAZENECA-2014SE45030

PATIENT
  Age: 17 Year
  Sex: Female
  Weight: 73.2 kg

DRUGS (3)
  1. ATENOLOL [Suspect]
     Route: 048
  2. ENOXAPARIN [Concomitant]
     Indication: DEEP VEIN THROMBOSIS
     Route: 050
     Dates: start: 20140530
  3. ZOLOFT [Concomitant]

REACTIONS (3)
  - International normalised ratio decreased [Recovered/Resolved]
  - Deep vein thrombosis [Unknown]
  - Thyroid disorder [Unknown]
